FAERS Safety Report 7575859-X (Version None)
Quarter: 2011Q2

REPORT INFORMATION
  Report Type: 
  Country: None (occurrence: None)
  Receive Date: 20110628
  Receipt Date: 20110620
  Transmission Date: 20111010
  Serious: No
  Sender: FDA-Public Use
  Company Number: US-BIOGENIDEC-2011BI022609

PATIENT
  Age: 58 Year
  Sex: Female

DRUGS (4)
  1. TYSABRI [Suspect]
     Route: 042
     Dates: start: 20080328, end: 20080912
  2. TYSABRI [Suspect]
     Indication: MULTIPLE SCLEROSIS
     Route: 042
     Dates: start: 20100825
  3. TYSABRI [Suspect]
     Route: 042
     Dates: start: 20101201
  4. TYSABRI [Suspect]
     Route: 042
     Dates: start: 20090217, end: 20100112

REACTIONS (1)
  - GENERAL SYMPTOM [None]
